FAERS Safety Report 15402254 (Version 1)
Quarter: 2018Q3

REPORT INFORMATION
  Report Type: Spontaneous
  Country: GB (occurrence: GB)
  Receive Date: 20180919
  Receipt Date: 20180919
  Transmission Date: 20181010
  Serious: Yes (Other)
  Sender: FDA-Public Use
  Company Number: GB-PFIZER INC-2018372269

PATIENT
  Sex: Female
  Weight: 88.2 kg

DRUGS (10)
  1. AMLODIPINE [Concomitant]
     Active Substance: AMLODIPINE BESYLATE
     Dosage: 5 MG, UNK
  2. AMITRIPTYLINE [Concomitant]
     Active Substance: AMITRIPTYLINE
     Dosage: 10 MG, UNK (AMITRIPTYLINE 10 MG (40 MG DAILY)
  3. GABAPENTIN. [Suspect]
     Active Substance: GABAPENTIN
     Dosage: 900 MG, 1X/DAY
     Route: 048
  4. BUSCAPAN [Concomitant]
     Dosage: UNK
  5. VITAMIN B12 AAA [Concomitant]
     Dosage: 1000 MG, 1X/DAY (I.V B12 500 MGS , TWICE DAILY (MORNING AND NIGHT)
  6. SIMVASTATIN. [Concomitant]
     Active Substance: SIMVASTATIN
     Dosage: 20 MG, UNK
  7. OMEPRAZOLE. [Concomitant]
     Active Substance: OMEPRAZOLE
     Dosage: 20 MG, UNK
  8. PARACETAMOL [Concomitant]
     Active Substance: ACETAMINOPHEN
     Dosage: 500 MG, UNK
  9. ATENOLOL. [Concomitant]
     Active Substance: ATENOLOL
     Dosage: 25 MG, UNK
  10. RAMIPRIL. [Concomitant]
     Active Substance: RAMIPRIL
     Dosage: 10 MG, UNK

REACTIONS (17)
  - Feeling abnormal [Unknown]
  - Influenza like illness [Unknown]
  - Hypophagia [Unknown]
  - Oropharyngeal pain [Unknown]
  - Noninfective gingivitis [Unknown]
  - Speech disorder [Unknown]
  - Somnolence [Unknown]
  - Tremor [Unknown]
  - Amnesia [Unknown]
  - Fatigue [Unknown]
  - Mental impairment [Unknown]
  - Dizziness [Unknown]
  - Weight fluctuation [Unknown]
  - Dyspepsia [Unknown]
  - Malaise [Unknown]
  - Confusional state [Unknown]
  - Vertigo [Unknown]
